FAERS Safety Report 14630496 (Version 1)
Quarter: 2018Q1

REPORT INFORMATION
  Report Type: Spontaneous
  Country: US (occurrence: US)
  Receive Date: 20180313
  Receipt Date: 20180313
  Transmission Date: 20180509
  Serious: No
  Sender: FDA-Public Use
  Company Number: None

PATIENT
  Age: 68 Year
  Sex: Female

DRUGS (1)
  1. CAPECITABINE 500MG WEST-WARD [Suspect]
     Active Substance: CAPECITABINE
     Indication: METASTASES TO KIDNEY
     Dosage: 1500MG BID X14D , OFF X7D PO
     Route: 048
     Dates: start: 20180211

REACTIONS (2)
  - Vision blurred [None]
  - Skin discolouration [None]

NARRATIVE: CASE EVENT DATE: 20180224
